FAERS Safety Report 5587132-X (Version None)
Quarter: 2008Q1

REPORT INFORMATION
  Report Type: 
  Country: None (occurrence: None)
  Receive Date: 20080110
  Receipt Date: 20071221
  Transmission Date: 20080703
  Serious: Yes (Other)
  Sender: FDA-Public Use
  Company Number: US-WYE-H01958708

PATIENT
  Age: 39 Year
  Sex: Male
  Weight: 167 kg

DRUGS (2)
  1. PIPERACILLIN AND TAZOBACTAM [Suspect]
     Indication: PSEUDOMONAS INFECTION
     Route: 042
  2. VANCOMYCIN [Concomitant]

REACTIONS (2)
  - ANTIBIOTIC LEVEL BELOW THERAPEUTIC [None]
  - DRUG INEFFECTIVE [None]
